FAERS Safety Report 5002710-4 (Version None)
Quarter: 2006Q2

REPORT INFORMATION
  Report Type: 
  Country: None (occurrence: None)
  Receive Date: 20060516
  Receipt Date: 20060508
  Transmission Date: 20061013
  Serious: Yes (Death, Life-Threatening, Hospitalization)
  Sender: FDA-Public Use
  Company Number: NL-JNJFOC-20060501854

PATIENT
  Age: 73 Year
  Sex: Female
  Weight: 100 kg

DRUGS (10)
  1. REMICADE [Suspect]
     Indication: RHEUMATOID ARTHRITIS
     Dosage: THERAPY DURATION 4.6 YEARS
     Route: 042
  2. METHOTREXATE [Suspect]
     Indication: RHEUMATOID ARTHRITIS
     Route: 030
  3. METHOTREXATE [Suspect]
     Route: 048
  4. DICLOFENAC SODIUM [Concomitant]
     Route: 065
  5. CALCIUM CARBONATE [Concomitant]
     Route: 048
  6. NEXIUM [Concomitant]
     Route: 065
  7. CEDAX [Concomitant]
     Route: 065
  8. FOLIC ACID [Concomitant]
     Route: 065
  9. PARACETAMOL [Concomitant]
     Route: 065
  10. URISPAS [Concomitant]
     Route: 065

REACTIONS (6)
  - CEREBRAL INFARCTION [None]
  - DEATH [None]
  - DEHYDRATION [None]
  - HYPERKALAEMIA [None]
  - METABOLIC ACIDOSIS [None]
  - PANCYTOPENIA [None]
